FAERS Safety Report 10503624 (Version 2)
Quarter: 2014Q4

REPORT INFORMATION
  Report Type: Spontaneous
  Country: JP (occurrence: None)
  Receive Date: 20141003
  Receipt Date: 20141015
  Transmission Date: 20150528
  Serious: Yes (Hospitalization)
  Sender: FDA-Public Use
  Company Number: JP-017219

PATIENT
  Age: 85 Year
  Sex: Male
  Weight: 72 kg

DRUGS (3)
  1. DEGARELIX (DEGARELIX) (240 MG, 480 MG) [Suspect]
     Active Substance: DEGARELIX
     Indication: PROSTATE CANCER
     Dosage: TOTAL
     Route: 058
     Dates: start: 20131105, end: 20131105
  2. URIEF [Concomitant]
     Active Substance: SILODOSIN
  3. BROTIZOLAM [Concomitant]
     Active Substance: BROTIZOLAM

REACTIONS (10)
  - Fall [None]
  - Blood creatinine increased [None]
  - Brain natriuretic peptide increased [None]
  - Muscular weakness [None]
  - Fibrin D dimer increased [None]
  - Loss of consciousness [None]
  - Blood glucose increased [None]
  - Transient ischaemic attack [None]
  - Renal impairment [None]
  - Blood urea increased [None]

NARRATIVE: CASE EVENT DATE: 20140921
